FAERS Safety Report 17464515 (Version 1)
Quarter: 2020Q1

REPORT INFORMATION
  Report Type: Spontaneous
  Country: CN (occurrence: CN)
  Receive Date: 20200226
  Receipt Date: 20200226
  Transmission Date: 20200409
  Serious: Yes (Other)
  Sender: FDA-Public Use
  Company Number: CN-PFIZER INC-2020079753

PATIENT
  Sex: Male

DRUGS (1)
  1. CARDURA XL [Suspect]
     Active Substance: DOXAZOSIN MESYLATE
     Indication: BENIGN PROSTATIC HYPERPLASIA
     Dosage: UNK

REACTIONS (6)
  - C-reactive protein increased [Unknown]
  - Infection [Unknown]
  - Pneumonia [Unknown]
  - Cough [Unknown]
  - White blood cell count increased [Unknown]
  - Lung neoplasm malignant [Unknown]
